FAERS Safety Report 6194222-X (Version None)
Quarter: 2009Q2

REPORT INFORMATION
  Report Type: 
  Country: None (occurrence: None)
  Receive Date: 20090515
  Receipt Date: 20090515
  Transmission Date: 20091009
  Serious: Yes (Life-Threatening, Hospitalization)
  Sender: FDA-Public Use
  Company Number: None

PATIENT
  Sex: Female
  Weight: 48.5349 kg

DRUGS (3)
  1. GEODON [Suspect]
     Indication: DEPRESSION
     Dosage: 2 X A DAY
     Dates: start: 20071108
  2. GEODON [Suspect]
     Indication: DEPRESSION
     Dosage: 2 X A DAY
     Dates: start: 20081212
  3. BUT/APAP/CAF [Suspect]
     Dosage: 50/500/40 ON FILE

REACTIONS (3)
  - ABNORMAL BEHAVIOUR [None]
  - INSOMNIA [None]
  - WRONG DRUG ADMINISTERED [None]
